FAERS Safety Report 5376035-1 (Version None)
Quarter: 2007Q2

REPORT INFORMATION
  Report Type: 
  Country: None (occurrence: None)
  Receive Date: 20070628
  Receipt Date: 20070619
  Transmission Date: 20071010
  Serious: Yes (Hospitalization)
  Sender: FDA-Public Use
  Company Number: 2007AL002507

PATIENT
  Age: 12 Year
  Sex: Female

DRUGS (2)
  1. CARBAMAZEPINE [Suspect]
     Indication: EPILEPSY
     Dosage: X1; PO
     Route: 048
  2. PHENYTOIN [Concomitant]

REACTIONS (10)
  - ANTICONVULSANT DRUG LEVEL ABOVE THERAPEUTIC [None]
  - GRAND MAL CONVULSION [None]
  - HAEMODIALYSIS [None]
  - INCORRECT DOSE ADMINISTERED [None]
  - LOSS OF CONSCIOUSNESS [None]
  - MIOSIS [None]
  - POSTURE ABNORMAL [None]
  - PUPILLARY REFLEX IMPAIRED [None]
  - SOMNOLENCE [None]
  - TREATMENT NONCOMPLIANCE [None]
